FAERS Safety Report 26188220 (Version 1)
Quarter: 2025Q4

REPORT INFORMATION
  Report Type: Spontaneous
  Country: US (occurrence: None)
  Receive Date: 20251219
  Receipt Date: 20251219
  Transmission Date: 20260117
  Serious: Yes (Other)
  Sender: FDA-CTU
  Company Number: None

PATIENT
  Age: 29 Year
  Sex: Female
  Weight: 51.26 kg

DRUGS (8)
  1. KYLEENA [Suspect]
     Active Substance: LEVONORGESTREL
  2. Venlafaxine 75 mg 1x daily [Concomitant]
  3. Venlafaxine 75 mg 1x daily [Concomitant]
  4. Propranolol as needed for anxiety [Concomitant]
  5. VITAMINS [Concomitant]
     Active Substance: VITAMINS
  6. COENZYME Q10 [Concomitant]
     Active Substance: DIETARY SUPPLEMENT\UBIDECARENONE
  7. OMEPRAZOLE [Concomitant]
     Active Substance: OMEPRAZOLE
  8. FAMOTIDINE [Concomitant]
     Active Substance: FAMOTIDINE

REACTIONS (3)
  - Asherman^s syndrome [None]
  - Infertility female [None]
  - Complication associated with device [None]

NARRATIVE: CASE EVENT DATE: 20250101
